FAERS Safety Report 7513063-1 (Version None)
Quarter: 2011Q2

REPORT INFORMATION
  Report Type: 
  Country: None (occurrence: None)
  Receive Date: 20110525
  Receipt Date: 20110525
  Transmission Date: 20111010
  Serious: Yes (Other)
  Sender: FDA-Public Use
  Company Number: None

PATIENT
  Age: 64 Year
  Sex: Female
  Weight: 51.4 kg

DRUGS (2)
  1. RITUXIMAB [Concomitant]
  2. ZOMETA [Suspect]
     Dosage: 5MG X1 IV BOLUS
     Route: 040
     Dates: start: 20110214, end: 20110214

REACTIONS (6)
  - MALAISE [None]
  - HEADACHE [None]
  - PYREXIA [None]
  - PAIN [None]
  - DIPLOPIA [None]
  - STRABISMUS [None]
